FAERS Safety Report 9250361 (Version 1)
Quarter: 2013Q2

REPORT INFORMATION
  Report Type: Spontaneous
  Country: US (occurrence: US)
  Receive Date: 20130424
  Receipt Date: 20130424
  Transmission Date: 20140414
  Serious: Yes (Hospitalization)
  Sender: FDA-Public Use
  Company Number: US-GENZYME-CERZ-1002919

PATIENT
  Sex: Male
  Weight: 97.7 kg

DRUGS (1)
  1. CEREZYME [Suspect]
     Indication: GAUCHER^S DISEASE
     Dosage: 6000 (61.41 U/KG), 1X/W
     Route: 042
     Dates: start: 2005

REACTIONS (1)
  - Convulsion [Unknown]
